FAERS Safety Report 8402406-2 (Version None)
Quarter: 2012Q2

REPORT INFORMATION
  Report Type: 
  Country: None (occurrence: None)
  Receive Date: 20120601
  Receipt Date: 20120529
  Transmission Date: 20120825
  Serious: Yes (Other)
  Sender: FDA-Public Use
  Company Number: FR-PFIZER INC-2012128462

PATIENT
  Age: 34 Year
  Sex: Male

DRUGS (2)
  1. VARENICLINE TARTRATE [Suspect]
     Indication: SMOKING CESSATION THERAPY
     Dosage: 0.5 MG, DAILY
     Route: 048
     Dates: start: 20120401, end: 20120403
  2. VARENICLINE TARTRATE [Suspect]
     Dosage: 1 MG DAILY
     Route: 048
     Dates: start: 20120404, end: 20120422

REACTIONS (8)
  - ANXIETY [None]
  - AFFECTIVE DISORDER [None]
  - TOBACCO USER [None]
  - AGGRESSION [None]
  - INSOMNIA [None]
  - NEGATIVISM [None]
  - IRRITABILITY [None]
  - PSYCHOMOTOR HYPERACTIVITY [None]
